FAERS Safety Report 5533826-1 (Version None)
Quarter: 2007Q4

REPORT INFORMATION
  Report Type: 
  Country: None (occurrence: None)
  Receive Date: 20071129
  Receipt Date: 20071114
  Transmission Date: 20080405
  Serious: Yes (Other)
  Sender: FDA-Public Use
  Company Number: 100#03#2007-04795

PATIENT
  Age: 45 Year
  Sex: Female

DRUGS (2)
  1. ERYTHROMYCIN [Suspect]
     Indication: ECZEMA INFECTED
     Dosage: 1000 MG, ORAL
     Route: 048
     Dates: start: 20060612, end: 20060618
  2. TRANEXAMIC ACID (TRANEXAMIC ACID) (TRANEXAMIC ACID) [Concomitant]

REACTIONS (3)
  - EXFOLIATIVE RASH [None]
  - PHOTODERMATOSIS [None]
  - RASH ERYTHEMATOUS [None]
